FAERS Safety Report 6303220-4 (Version None)
Quarter: 2009Q3

REPORT INFORMATION
  Report Type: 
  Country: None (occurrence: None)
  Receive Date: 20090810
  Receipt Date: 20090119
  Transmission Date: 20100115
  Serious: No
  Sender: FDA-Public Use
  Company Number: A0765141A

PATIENT
  Sex: Female
  Weight: 102.3 kg

DRUGS (5)
  1. PAXIL [Suspect]
     Indication: DRUG USE FOR UNKNOWN INDICATION
  2. NIACIN [Suspect]
     Route: 048
     Dates: start: 20080801
  3. METOPROLOL [Suspect]
     Route: 048
  4. CLARITIN [Suspect]
     Indication: SEASONAL ALLERGY
  5. PANTOPRAZOLE SODIUM [Concomitant]
     Indication: ULCER
     Route: 048

REACTIONS (5)
  - FLUSHING [None]
  - MENORRHAGIA [None]
  - MENSTRUAL DISORDER [None]
  - PRURITUS [None]
  - RASH [None]
